FAERS Safety Report 10065490 (Version 1)
Quarter: 2014Q2

REPORT INFORMATION
  Report Type: Spontaneous
  Country: JP (occurrence: JP)
  Receive Date: 20140408
  Receipt Date: 20140408
  Transmission Date: 20141212
  Serious: Yes (Other)
  Sender: FDA-Public Use
  Company Number: PHHY2014JP041372

PATIENT
  Age: 50 Year
  Sex: Female

DRUGS (1)
  1. VOLTAREN [Suspect]
     Dosage: 25 MG, DAILY
     Route: 054
     Dates: start: 201302, end: 201302

REACTIONS (1)
  - Stevens-Johnson syndrome [Unknown]
